FAERS Safety Report 12693522 (Version 1)
Quarter: 2016Q3

REPORT INFORMATION
  Report Type: Spontaneous
  Country: US (occurrence: US)
  Receive Date: 20160829
  Receipt Date: 20160829
  Transmission Date: 20161109
  Serious: No
  Sender: FDA-Public Use
  Company Number: US-GLAXOSMITHKLINE-US2016118176

PATIENT
  Age: 70 Year
  Sex: Female

DRUGS (6)
  1. INCRUSE ELLIPTA [Suspect]
     Active Substance: UMECLIDINIUM BROMIDE
     Indication: ASTHMA
  2. SINGULAIR [Concomitant]
     Active Substance: MONTELUKAST SODIUM
  3. FLONASE [Concomitant]
     Active Substance: FLUTICASONE PROPIONATE
  4. INCRUSE ELLIPTA [Suspect]
     Active Substance: UMECLIDINIUM BROMIDE
     Indication: CHRONIC OBSTRUCTIVE PULMONARY DISEASE
     Dosage: 1 PUFF(S), QD
     Route: 055
     Dates: start: 20160601
  5. QVAR [Concomitant]
     Active Substance: BECLOMETHASONE DIPROPIONATE
  6. ALBUTEROL. [Concomitant]
     Active Substance: ALBUTEROL

REACTIONS (10)
  - Headache [Not Recovered/Not Resolved]
  - Device use error [Unknown]
  - Sneezing [Recovered/Resolved]
  - Tremor [Recovering/Resolving]
  - Thyroid function test abnormal [Not Recovered/Not Resolved]
  - Wheezing [Unknown]
  - Asthenia [Not Recovered/Not Resolved]
  - Hypoaesthesia [Not Recovered/Not Resolved]
  - Nausea [Recovering/Resolving]
  - Pharyngeal disorder [Recovered/Resolved]

NARRATIVE: CASE EVENT DATE: 2016
